FAERS Safety Report 6979020-9 (Version None)
Quarter: 2010Q3

REPORT INFORMATION
  Report Type: 
  Country: None (occurrence: None)
  Receive Date: 20100913
  Receipt Date: 20100906
  Transmission Date: 20110219
  Serious: Yes (Death, Hospitalization)
  Sender: FDA-Public Use
  Company Number: IT-CELGENEUS-083-20785-10090441

PATIENT
  Sex: Male
  Weight: 88 kg

DRUGS (21)
  1. THALIDOMIDE [Suspect]
     Indication: MULTIPLE MYELOMA
     Dosage: 100 MGX15 DAYS THEN 200MG UP TO 42 DAYS
     Route: 048
     Dates: start: 20100201
  2. THALIDOMIDE [Suspect]
     Route: 048
     Dates: start: 20100315, end: 20100617
  3. DELTACORTONE [Suspect]
     Indication: MULTIPLE MYELOMA
     Route: 048
     Dates: start: 20100201
  4. DELTACORTONE [Suspect]
     Route: 048
     Dates: start: 20100609, end: 20100612
  5. DELTACORTONE [Suspect]
     Route: 048
     Dates: start: 20100613, end: 20100614
  6. DELTACORTONE [Suspect]
     Route: 048
     Dates: start: 20100615, end: 20100616
  7. ALKERAN [Concomitant]
     Indication: MULTIPLE MYELOMA
     Route: 048
     Dates: start: 20100201
  8. ALKERAN [Concomitant]
     Route: 048
     Dates: start: 20100609, end: 20100612
  9. VFEND [Concomitant]
     Indication: PRODUCT USED FOR UNKNOWN INDICATION
     Route: 048
     Dates: start: 20100329, end: 20100617
  10. LANSOX [Concomitant]
     Indication: PRODUCT USED FOR UNKNOWN INDICATION
     Route: 048
     Dates: start: 20100201, end: 20100617
  11. TIOTROPIUM BROMIDE [Concomitant]
     Route: 065
     Dates: start: 20091101
  12. ALLOPURINOL [Concomitant]
     Indication: PRODUCT USED FOR UNKNOWN INDICATION
     Route: 065
  13. DEPALGOS [Concomitant]
     Indication: PRODUCT USED FOR UNKNOWN INDICATION
     Dosage: 5+325 MG
     Route: 065
     Dates: start: 20100426
  14. LASIX [Concomitant]
     Indication: PRODUCT USED FOR UNKNOWN INDICATION
     Route: 065
  15. FLUTICASONE W/SALMETEROL [Concomitant]
     Indication: PRODUCT USED FOR UNKNOWN INDICATION
     Dosage: 2 PUFF TWICE A DAY
     Route: 055
  16. VENTOLIN [Concomitant]
     Indication: PRODUCT USED FOR UNKNOWN INDICATION
     Route: 055
  17. CLEXANE [Concomitant]
     Indication: PRODUCT USED FOR UNKNOWN INDICATION
     Dosage: 1 INJECTION
     Route: 058
  18. PURSENID [Concomitant]
     Indication: PRODUCT USED FOR UNKNOWN INDICATION
     Route: 065
  19. CACIT D3 [Concomitant]
     Indication: PRODUCT USED FOR UNKNOWN INDICATION
     Route: 065
  20. ZOMETA [Concomitant]
     Indication: PRODUCT USED FOR UNKNOWN INDICATION
     Route: 065
  21. GENTALYN [Concomitant]
     Indication: PRODUCT USED FOR UNKNOWN INDICATION
     Route: 061

REACTIONS (1)
  - SEPTIC SHOCK [None]
